FAERS Safety Report 5054126-2 (Version None)
Quarter: 2006Q3

REPORT INFORMATION
  Report Type: 
  Country: None (occurrence: None)
  Receive Date: 20060713
  Receipt Date: 20060626
  Transmission Date: 20061208
  Serious: Yes (Hospitalization)
  Sender: FDA-Public Use
  Company Number: 2006JP001897

PATIENT
  Age: 73 Year
  Sex: Male
  Weight: 54 kg

DRUGS (19)
  1. TACROLIMUS CAPSULES (TACROLIMUS) CAPSULE [Suspect]
     Indication: RHEUMATOID ARTHRITIS
     Dosage: 2 MG, D, ORAL
     Route: 048
     Dates: start: 20051214
  2. PREDNISOLONE [Suspect]
     Indication: RHEUMATOID ARTHRITIS
     Dosage: SEE IMAGE
     Route: 048
     Dates: start: 20060111, end: 20060119
  3. PREDNISOLONE [Suspect]
     Indication: RHEUMATOID ARTHRITIS
     Dosage: SEE IMAGE
     Route: 048
     Dates: start: 20060120, end: 20060202
  4. PREDNISOLONE [Suspect]
     Indication: RHEUMATOID ARTHRITIS
     Dosage: SEE IMAGE
     Route: 048
     Dates: start: 20060203, end: 20060216
  5. PREDNISOLONE [Suspect]
     Indication: RHEUMATOID ARTHRITIS
     Dosage: SEE IMAGE
     Route: 048
     Dates: start: 20060217, end: 20060316
  6. PREDNISOLONE [Suspect]
     Indication: RHEUMATOID ARTHRITIS
     Dosage: SEE IMAGE
     Route: 048
     Dates: start: 20060317, end: 20060421
  7. PREDNISOLONE [Suspect]
     Indication: RHEUMATOID ARTHRITIS
     Dosage: SEE IMAGE
     Route: 048
     Dates: start: 20060422, end: 20060524
  8. PREDNISOLONE [Suspect]
     Indication: RHEUMATOID ARTHRITIS
     Dosage: SEE IMAGE
     Route: 048
     Dates: start: 20060525
  9. ENBREL [Suspect]
     Indication: RHEUMATOID ARTHRITIS
     Dosage: 50 MG, WEEKLY
     Dates: start: 20060111, end: 20060502
  10. VOLTAREN [Concomitant]
  11. RABEPRAZOLE SODIUM [Concomitant]
  12. ALFAROL(ALFACALCIDOL) [Concomitant]
  13. HARNAL (TAMSULOSIN HYDROCHLORIDE) ORODISPERSABLE CR TABLET [Concomitant]
  14. ISONIAZID [Concomitant]
  15. PYDOXAL (PYRIDOXAL PHOSPHATE) [Concomitant]
  16. MAGLAX (MAGNESIUM OXIDE) [Concomitant]
  17. TICLOPIDINE HCL [Concomitant]
  18. MYONAL (EPERISONE HYDROCHLORIDE) [Concomitant]
  19. CEROCRAL (IFENPRODIL TARTRATE) [Concomitant]

REACTIONS (2)
  - LUMBAR VERTEBRAL FRACTURE [None]
  - PNEUMONIA BACTERIAL [None]
